FAERS Safety Report 6457940-1 (Version None)
Quarter: 2009Q4

REPORT INFORMATION
  Report Type: 
  Country: None (occurrence: None)
  Receive Date: 20091125
  Receipt Date: 20091117
  Transmission Date: 20100525
  Serious: Yes (Death)
  Sender: FDA-Public Use
  Company Number: US-AMGEN-QUU375199

PATIENT
  Sex: Male

DRUGS (2)
  1. NEUPOGEN [Suspect]
     Indication: DRUG USE FOR UNKNOWN INDICATION
     Route: 058
     Dates: end: 20091001
  2. UNSPECIFIED MEDICATION [Concomitant]

REACTIONS (2)
  - HEPATIC FAILURE [None]
  - WHITE BLOOD CELL COUNT DECREASED [None]
